FAERS Safety Report 17475472 (Version 10)
Quarter: 2021Q1

REPORT INFORMATION
  Report Type: Spontaneous
  Country: US (occurrence: US)
  Receive Date: 20200228
  Receipt Date: 20210208
  Transmission Date: 20210419
  Serious: Yes (Other)
  Sender: FDA-Public Use
  Company Number: US-PFIZER INC-2019313363

PATIENT
  Age: 74 Year
  Sex: Female
  Weight: 125 kg

DRUGS (5)
  1. LYRICA [Suspect]
     Active Substance: PREGABALIN
     Indication: NEUROPATHY PERIPHERAL
  2. LYRICA [Suspect]
     Active Substance: PREGABALIN
     Indication: FIBROMYALGIA
  3. LYRICA [Suspect]
     Active Substance: PREGABALIN
     Indication: MONONEUROPATHY
  4. LYRICA [Suspect]
     Active Substance: PREGABALIN
     Indication: NEURALGIA
     Dosage: 150 MG, 3X/DAY (TAKE 1 CAPSULE (150 MG TOTAL) BY MOUTH 3 (THREE) TIMES A DAY)
     Route: 048
     Dates: start: 2007
  5. LYRICA [Suspect]
     Active Substance: PREGABALIN
     Indication: NEURITIS

REACTIONS (8)
  - Cerebrovascular accident [Recovered/Resolved with Sequelae]
  - Hypoaesthesia [Unknown]
  - Headache [Unknown]
  - Nervousness [Unknown]
  - Speech disorder [Recovered/Resolved]
  - Irritability [Unknown]
  - Fall [Unknown]
  - Intentional product misuse [Unknown]

NARRATIVE: CASE EVENT DATE: 20190911
